FAERS Safety Report 10439478 (Version 2)
Quarter: 2014Q3

REPORT INFORMATION
  Report Type: Spontaneous
  Country: US (occurrence: US)
  Receive Date: 20140908
  Receipt Date: 20140908
  Transmission Date: 20150326
  Serious: Yes (Other)
  Sender: FDA-Public Use
  Company Number: US-BRISTOL-MYERS SQUIBB COMPANY-19209568

PATIENT
  Age: 58 Year
  Sex: Male
  Weight: 114.28 kg

DRUGS (3)
  1. ABILIFY [Suspect]
     Active Substance: ARIPIPRAZOLE
     Indication: AFFECTIVE DISORDER
     Dosage: REPORTS HAVING BOX OF ABILIFY 10MG AND TAKING A HALF OF TAB.?10MG
     Route: 048
     Dates: start: 20130807, end: 20130813
  2. ABILIFY [Suspect]
     Active Substance: ARIPIPRAZOLE
     Indication: DEPRESSION
     Dosage: REPORTS HAVING BOX OF ABILIFY 10MG AND TAKING A HALF OF TAB.?10MG
     Route: 048
     Dates: start: 20130807, end: 20130813
  3. WELLBUTRIN [Concomitant]
     Active Substance: BUPROPION HYDROCHLORIDE
     Dosage: WELLBUTRIN XR 20MG IN THE AM

REACTIONS (1)
  - Supraventricular tachycardia [Unknown]

NARRATIVE: CASE EVENT DATE: 20130809
